FAERS Safety Report 19415712 (Version 2)
Quarter: 2021Q2

REPORT INFORMATION
  Report Type: Spontaneous
  Country: IE (occurrence: IE)
  Receive Date: 20210615
  Receipt Date: 20210617
  Transmission Date: 20210717
  Serious: Yes (Life-Threatening, Hospitalization)
  Sender: FDA-Public Use
  Company Number: IE-TEVA-2021-IE-1922517

PATIENT
  Age: 25 Year
  Sex: Female

DRUGS (3)
  1. MOVIPREP [Suspect]
     Active Substance: ASCORBIC ACID\POLYETHYLENE GLYCOL 3350\POTASSIUM CHLORIDE\SODIUM ASCORBATE\SODIUM CHLORIDE\SODIUM SULFATE
     Indication: LAXATIVE SUPPORTIVE CARE
     Dosage: CONTAINED PEG?3350 AS EXCIPIENT?MOVI?PREP
     Route: 048
  2. IBUPROFEN. [Suspect]
     Active Substance: IBUPROFEN
     Indication: PRODUCT USED FOR UNKNOWN INDICATION
     Dosage: CONTAINED MACROGOLS (PEG) AS EXCIPIENT
     Route: 048
  3. NEXIUM [Suspect]
     Active Substance: ESOMEPRAZOLE MAGNESIUM
     Indication: PRODUCT USED FOR UNKNOWN INDICATION
     Dosage: CONTAINED MACROGOLS (PEG) AS EXCIPIENT
     Route: 048

REACTIONS (3)
  - Hypotension [Unknown]
  - Hypersensitivity [Unknown]
  - Respiratory disorder [Unknown]
